FAERS Safety Report 7035026-5 (Version None)
Quarter: 2010Q4

REPORT INFORMATION
  Report Type: 
  Country: None (occurrence: None)
  Receive Date: 20101008
  Receipt Date: 20101004
  Transmission Date: 20110411
  Serious: Yes (Hospitalization)
  Sender: FDA-Public Use
  Company Number: MX-ROCHE-731033

PATIENT
  Sex: Female
  Weight: 69 kg

DRUGS (3)
  1. PEGINTERFERON ALFA-2A [Suspect]
     Indication: HEPATITIS C
     Route: 058
     Dates: start: 20100722, end: 20100826
  2. RIBAVARIN [Suspect]
     Indication: HEPATITIS C
     Dosage: FREQUENCY REPORTED : 3 TABLETS OF 200 MG BID.
     Route: 048
     Dates: start: 20100722, end: 20100826
  3. OMEPRAZOLE [Concomitant]
     Indication: GASTRITIS
     Route: 048
     Dates: start: 20090101

REACTIONS (9)
  - ASTHENIA [None]
  - BLINDNESS [None]
  - BLINDNESS TRANSIENT [None]
  - CONSTIPATION [None]
  - DECREASED APPETITE [None]
  - DEPRESSION [None]
  - DRY SKIN [None]
  - OEDEMA PERIPHERAL [None]
  - VISION BLURRED [None]
